FAERS Safety Report 8942493 (Version 1)
Quarter: 2012Q4

REPORT INFORMATION
  Report Type: 
  Country: DE (occurrence: DE)
  Receive Date: 20121204
  Receipt Date: 20121204
  Transmission Date: 20130627
  Serious: Yes (Other)
  Sender: FDA-Public Use
  Company Number: DE-ROXANE LABORATORIES, INC.-2012-RO-02466RO

PATIENT
  Age: 1 Day
  Sex: Male
  Weight: 2 kg

DRUGS (2)
  1. CYCLOPHOSPHAMIDE TABLETS USP [Suspect]
     Indication: FOETAL EXPOSURE DURING PREGNANCY
     Route: 064
  2. DOCETAXEL [Suspect]
     Indication: FOETAL EXPOSURE DURING PREGNANCY
     Route: 064

REACTIONS (4)
  - Apgar score low [Recovered/Resolved]
  - Hypoglycaemia [Unknown]
  - Convulsion neonatal [Unknown]
  - Thrombocytopenia [Unknown]
